FAERS Safety Report 8906256 (Version 2)
Quarter: 2014Q4

REPORT INFORMATION
  Report Type: Spontaneous
  Country: US (occurrence: None)
  Receive Date: 20121106
  Receipt Date: 20141104
  Transmission Date: 20150529
  Serious: Yes (Hospitalization, Other)
  Sender: FDA-Public Use
  Company Number: JPI-P-026044

PATIENT
  Age: 43 Year
  Sex: Female
  Weight: 44.5 kg

DRUGS (6)
  1. XYREM [Suspect]
     Active Substance: SODIUM OXYBATE
     Indication: CATAPLEXY
     Dosage: (2.5 GM, 2 IN 1 D)
     Route: 048
     Dates: start: 20031119, end: 2004
  2. CYCLOBENZAPRINE HCL (CYCLOBEZAPRINE HYDROCHLORIDE) [Concomitant]
  3. GABAPENTIN (GABAPENTIN) [Concomitant]
     Active Substance: GABAPENTIN
  4. XYREM [Suspect]
     Active Substance: SODIUM OXYBATE
     Indication: NARCOLEPSY
     Dosage: (2.5 GM, 2 IN 1 D)
     Route: 048
     Dates: start: 20031119, end: 2004
  5. METHAMPHETAMINE (METAMFETAMINE HYDROCHLORIDE) [Concomitant]
     Active Substance: METHAMPHETAMINE HYDROCHLORIDE
  6. SUMATRIPTAN SUCCINATE (SUMATRIPTAN SUCCINATE) [Concomitant]

REACTIONS (3)
  - Hysterectomy [None]
  - Drug interaction [None]
  - Intestinal obstruction [None]

NARRATIVE: CASE EVENT DATE: 2012
